FAERS Safety Report 6144215-3 (Version None)
Quarter: 2009Q2

REPORT INFORMATION
  Report Type: 
  Country: None (occurrence: None)
  Receive Date: 20090406
  Receipt Date: 20090406
  Transmission Date: 20091009
  Serious: Yes (Death, Hospitalization)
  Sender: FDA-Public Use
  Company Number: PHHO2004FR17652

PATIENT
  Sex: Female

DRUGS (2)
  1. CGS 20267 T30748+ [Suspect]
     Indication: BREAST CANCER
     Dosage: 2.5 MG, QD
  2. TAMOXIFEN CITRATE [Suspect]
     Dosage: 20 MG, QD-2 YEARS
     Dates: start: 20001001

REACTIONS (6)
  - DYSPNOEA [None]
  - HYPOCAPNIA [None]
  - HYPOXIA [None]
  - PALPITATIONS [None]
  - PULMONARY EMBOLISM [None]
  - TACHYCARDIA [None]
